FAERS Safety Report 9034988 (Version 2)
Quarter: 2013Q1

REPORT INFORMATION
  Report Type: Spontaneous
  Country: FR (occurrence: None)
  Receive Date: 20130115
  Receipt Date: 20130215
  Transmission Date: 20140127
  Serious: Yes (Hospitalization, Other)
  Sender: FDA-Public Use
  Company Number: 2012-2669

PATIENT
  Age: 33 Year
  Sex: Female

DRUGS (1)
  1. DYSPORT [Suspect]
     Dosage: 1000 UNITS (1000 UNITS, 1 IN 1 CYCLE(S), INTRAMUSCULAR
     Route: 030
     Dates: start: 20120509, end: 20120509

REACTIONS (4)
  - Abortion spontaneous [None]
  - Injection site pain [None]
  - Exposure during pregnancy [None]
  - Wrong technique in drug usage process [None]
